FAERS Safety Report 16384123 (Version 1)
Quarter: 2019Q2

REPORT INFORMATION
  Report Type: Spontaneous
  Country: FR (occurrence: FR)
  Receive Date: 20190603
  Receipt Date: 20190603
  Transmission Date: 20190711
  Serious: Yes (Disabling)
  Sender: FDA-Public Use
  Company Number: FR-PFIZER INC-2019227275

PATIENT
  Age: 72 Year
  Sex: Male

DRUGS (1)
  1. SUTENT [Suspect]
     Active Substance: SUNITINIB MALATE
     Indication: RENAL CANCER METASTATIC

REACTIONS (6)
  - Diarrhoea [Unknown]
  - Dysphonia [Recovered/Resolved]
  - Gastritis [Unknown]
  - Constipation [Unknown]
  - Oesophagitis [Unknown]
  - Skin lesion [Recovering/Resolving]
